FAERS Safety Report 21491444 (Version 1)
Quarter: 2022Q4

REPORT INFORMATION
  Report Type: Spontaneous
  Country: US (occurrence: US)
  Receive Date: 20221021
  Receipt Date: 20221021
  Transmission Date: 20230112
  Serious: No
  Sender: FDA-Public Use
  Company Number: US-CELLTRION INC.-2022US011174

PATIENT

DRUGS (4)
  1. INFLECTRA [Suspect]
     Active Substance: INFLIXIMAB-DYYB
     Indication: Scleritis
     Dosage: 5 MG/KG (STARTING DOSE)
  2. INFLECTRA [Suspect]
     Active Substance: INFLIXIMAB-DYYB
     Dosage: MAINTENANCE DOSE GIVEN EVERY 4 WEEKS INITIALLY
  3. REMICADE [Suspect]
     Active Substance: INFLIXIMAB
     Indication: Scleritis
     Dosage: 5 MG/KG (STARTING DOSE)
  4. REMICADE [Suspect]
     Active Substance: INFLIXIMAB
     Dosage: UNK UNK, Q4WEEKS

REACTIONS (3)
  - Therapy responder [Unknown]
  - Drug effective for unapproved indication [Unknown]
  - Off label use [Unknown]
